FAERS Safety Report 6489719-9 (Version None)
Quarter: 2009Q4

REPORT INFORMATION
  Report Type: 
  Country: None (occurrence: None)
  Receive Date: 20091207
  Receipt Date: 20091207
  Transmission Date: 20100525
  Serious: Yes (Other)
  Sender: FDA-Public Use
  Company Number: 8055349

PATIENT
  Sex: Female

DRUGS (1)
  1. CIMZIA [Suspect]
     Dosage: 400 MG /M SC
     Dates: start: 20081030

REACTIONS (3)
  - BLISTER [None]
  - NASOPHARYNGITIS [None]
  - PRURITUS GENERALISED [None]
